FAERS Safety Report 13878170 (Version 1)
Quarter: 2017Q3

REPORT INFORMATION
  Report Type: Spontaneous
  Country: US (occurrence: US)
  Receive Date: 20170817
  Receipt Date: 20170817
  Transmission Date: 20171127
  Serious: No
  Sender: FDA-Public Use
  Company Number: US-ROCHE-1225036

PATIENT
  Sex: Male

DRUGS (3)
  1. PEGASYS [Suspect]
     Active Substance: PEGINTERFERON ALFA-2A
     Indication: PRODUCT USED FOR UNKNOWN INDICATION
     Route: 065
  2. INFERGEN [Concomitant]
     Active Substance: INTERFERON ALFACON-1
  3. RIBAVIRIN. [Suspect]
     Active Substance: RIBAVIRIN
     Indication: HEPATITIS C
     Route: 065

REACTIONS (3)
  - Portal hypertension [Unknown]
  - Splenomegaly [Unknown]
  - Treatment failure [Unknown]
